FAERS Safety Report 6555564-9 (Version None)
Quarter: 2010Q1

REPORT INFORMATION
  Report Type: 
  Country: None (occurrence: None)
  Receive Date: 20100128
  Receipt Date: 20100121
  Transmission Date: 20100710
  Serious: Yes (Hospitalization, Other)
  Sender: FDA-Public Use
  Company Number: BR-ABBOTT-10P-020-0621833-00

PATIENT
  Sex: Female
  Weight: 69.5 kg

DRUGS (5)
  1. HUMIRA [Suspect]
     Indication: RHEUMATOID ARTHRITIS
     Route: 058
  2. ARAVA [Concomitant]
     Indication: ARTHRITIS
     Route: 048
  3. PAROXETINE HCL [Concomitant]
     Indication: DEPRESSION
     Route: 048
  4. RIVOTRIL [Concomitant]
     Indication: EPILEPSY
     Dosage: FORM STRENGTH: 2 MILLIGRAMS
     Route: 048
  5. HALDOL [Concomitant]
     Indication: DEPRESSION
     Route: 048

REACTIONS (7)
  - ANEURYSM [None]
  - ARTHRALGIA [None]
  - BACK PAIN [None]
  - EPILEPSY [None]
  - LEIOMYOMA [None]
  - MUSCULOSKELETAL PAIN [None]
  - PAIN IN EXTREMITY [None]
